FAERS Safety Report 11656331 (Version 3)
Quarter: 2015Q4

REPORT INFORMATION
  Report Type: Spontaneous
  Country: JP (occurrence: JP)
  Receive Date: 20151023
  Receipt Date: 20151209
  Transmission Date: 20160304
  Serious: Yes (Hospitalization)
  Sender: FDA-Public Use
  Company Number: JP-FERRINGPH-2015FE03598

PATIENT

DRUGS (4)
  1. ESTRANA [Concomitant]
     Indication: PROGESTIN REPLACEMENT THERAPY
     Dosage: 28.8 MG, DAILY
     Route: 062
     Dates: start: 20150902, end: 20150918
  2. LUTINUS [Suspect]
     Active Substance: PROGESTERONE
     Indication: ASSISTED FERTILISATION
     Dosage: 300 MG, DAILY
     Route: 067
     Dates: start: 20150917, end: 20151024
  3. PROGESTERONE. [Concomitant]
     Active Substance: PROGESTERONE
     Indication: PROGESTIN REPLACEMENT THERAPY
     Dosage: 50 MG, DAILY
     Route: 030
     Dates: start: 20150914, end: 20150918
  4. LUTORAL [Concomitant]
     Active Substance: CHLORMADINONE ACETATE\MESTRANOL
     Indication: PROGESTIN REPLACEMENT THERAPY
     Dosage: 12 MG, UNK
     Route: 048
     Dates: start: 20150913, end: 20150918

REACTIONS (3)
  - Peritonitis [Recovered/Resolved]
  - Sepsis [Recovered/Resolved]
  - Fallopian tube abscess [Not Recovered/Not Resolved]

NARRATIVE: CASE EVENT DATE: 20150917
